FAERS Safety Report 6425519-3 (Version None)
Quarter: 2009Q4

REPORT INFORMATION
  Report Type: 
  Country: None (occurrence: None)
  Receive Date: 20091029
  Receipt Date: 20091023
  Transmission Date: 20100525
  Serious: Yes (Disabling)
  Sender: FDA-Public Use
  Company Number: 2009010170

PATIENT
  Age: 32 Year
  Sex: Male
  Weight: 81.6475 kg

DRUGS (11)
  1. ACTIQ [Suspect]
     Dosage: 1600 MCG, BU 200 MCG, 3-4 LOZENGES; EVERY 3-4 HOURS, BU
     Route: 002
     Dates: start: 20010101, end: 20090801
  2. ACTIQ [Suspect]
     Dosage: 1600 MCG, BU 200 MCG, 3-4 LOZENGES; EVERY 3-4 HOURS, BU
     Route: 002
     Dates: start: 20090801
  3. OXYCONTIN [Concomitant]
  4. METOPROLOL      (METOPROLOL) [Concomitant]
  5. XANAX       (METOPROLOL) [Concomitant]
  6. WELLBUTRIN [Concomitant]
  7. CELEXA [Concomitant]
  8. TRAZODONE HCL [Concomitant]
  9. ZETIA [Concomitant]
  10. ADVAIR (FLUTICASONE PROPIONATE, SALMETROL XINAFOATE) [Concomitant]
  11. SPIRIVA [Concomitant]

REACTIONS (6)
  - ECONOMIC PROBLEM [None]
  - INCORRECT DOSE ADMINISTERED [None]
  - PAIN [None]
  - PARAESTHESIA [None]
  - PRURITUS [None]
  - WITHDRAWAL SYNDROME [None]
